FAERS Safety Report 8901688 (Version 1)
Quarter: 2012Q4

REPORT INFORMATION
  Report Type: Spontaneous
  Country: DE (occurrence: None)
  Receive Date: 20121101
  Receipt Date: 20121101
  Transmission Date: 20130627
  Serious: Yes (Death)
  Sender: FDA-Public Use
  Company Number: GER/GER/12/0026261

PATIENT
  Age: 83 Year
  Sex: Female
  Weight: 59 kg

DRUGS (18)
  1. CLOPIDOGREL [Suspect]
     Indication: STENT PLACEMENT
     Route: 048
     Dates: start: 20120418, end: 20120510
  2. SIMVASTATIN (SIMVASTATIN) [Suspect]
     Indication: DRUG USE FOR UNKNOWN INDICATION
     Route: 048
     Dates: end: 20120430
  3. ALLOPURINOL [Suspect]
     Indication: HYPERURICAEMIA
     Route: 048
     Dates: start: 20120416, end: 20120430
  4. OMEPRAZOLE [Suspect]
     Indication: DRUG USE FOR UNKNOWN INDICATION
     Route: 048
  5. PANTOPRAZOLE [Suspect]
     Indication: GASTRITIS PROPHYLAXIS
     Route: 048
     Dates: start: 20120403, end: 20120430
  6. TORASEMIDE [Suspect]
     Indication: DRUG USE FOR UNKNOWN INDICATION
     Dosage: 1-0-1/2
     Route: 048
     Dates: end: 20120524
  7. ENALAPRIL [Suspect]
     Indication: CARDIAC FAILURE
     Route: 048
     Dates: start: 20120326, end: 20120430
  8. IBUPROFEN (IBUPROFEN) [Concomitant]
  9. ZOPICLONE (ZOPICLONE) [Concomitant]
  10. ASS PROTECT 100 (ACETYLSALICYLIC ACID) [Concomitant]
  11. PRASUGREL (PRASUGREL) [Concomitant]
  12. FERRO SANOL (FERROUS SULFATE) [Concomitant]
  13. DIGOXIN 0,07 (DIGITOXIN) [Concomitant]
  14. HCT 12.5 MG (HYDROCHLOROTHIAZIDE) [Concomitant]
  15. METOPROLOL (METOPROLOL) [Concomitant]
  16. METHIZOL (THIAMAZOLE) [Concomitant]
  17. COLCHYSAT TRPF (COLCHICUM AUTUMNALE TINCTURE) [Concomitant]
  18. TRAMADOLOR (TRAMADOL HYDROCHLORIDE) [Concomitant]

REACTIONS (6)
  - Hyperbilirubinaemia [None]
  - Drug-induced liver injury [None]
  - Cholestasis [None]
  - Hepatic steatosis [None]
  - Hepatotoxicity [None]
  - Brain natriuretic peptide increased [None]
